FAERS Safety Report 4933876-X (Version None)
Quarter: 2006Q1

REPORT INFORMATION
  Report Type: 
  Country: None (occurrence: None)
  Receive Date: 20060306
  Receipt Date: 20050718
  Transmission Date: 20060701
  Serious: Yes (Hospitalization)
  Sender: FDA-Public Use
  Company Number: US-MERCK-0507USA02347

PATIENT
  Age: 67 Year
  Sex: Male
  Weight: 95 kg

DRUGS (13)
  1. VIOXX [Suspect]
     Indication: ARTHRITIS
     Route: 048
     Dates: end: 20020101
  2. ACETAMINOPHEN [Concomitant]
     Indication: PAIN
     Route: 048
  3. CYCLOBENZAPRINE HYDROCHLORIDE [Concomitant]
     Route: 048
  4. DOCUSATE CALCIUM [Concomitant]
     Route: 048
  5. FLUOXETINE HYDROCHLORIDE [Concomitant]
     Route: 048
  6. HYDROCORTISONE AND NEOMYCIN [Concomitant]
     Route: 065
  7. HOMATROPINE HYDROBROMIDE [Concomitant]
     Route: 047
  8. HYDROCORTISONE [Concomitant]
     Route: 061
  9. OXYBUTYNIN [Concomitant]
     Route: 048
  10. PREDNISONE ACETATE [Concomitant]
     Route: 047
  11. SULFASALAZINE [Concomitant]
     Route: 048
  12. TAMSULOSIN HYDROCHLORIDE [Concomitant]
     Route: 048
  13. SYNTHROID [Concomitant]
     Route: 065

REACTIONS (6)
  - ANTISOCIAL PERSONALITY DISORDER [None]
  - ATRIAL FLUTTER [None]
  - DEPRESSION [None]
  - DYSPHAGIA [None]
  - THROMBOSIS [None]
  - TRANSIENT ISCHAEMIC ATTACK [None]
